FAERS Safety Report 12580981 (Version 2)
Quarter: 2016Q3

REPORT INFORMATION
  Report Type: Spontaneous
  Country: US (occurrence: US)
  Receive Date: 20160721
  Receipt Date: 20160808
  Transmission Date: 20161109
  Serious: Yes (Disabling, Other)
  Sender: FDA-Public Use
  Company Number: US-MYLANLABS-2016M1029742

PATIENT

DRUGS (1)
  1. TARINA FE 1/20 [Suspect]
     Active Substance: ETHINYL ESTRADIOL\NORETHINDRONE ACETATE
     Dosage: UNK
     Dates: end: 201607

REACTIONS (12)
  - Blood pressure increased [Not Recovered/Not Resolved]
  - Vein discolouration [Unknown]
  - Suicide attempt [Unknown]
  - Activities of daily living impaired [Not Recovered/Not Resolved]
  - Breast mass [Unknown]
  - Peripheral swelling [Unknown]
  - Deep vein thrombosis [Unknown]
  - Unevaluable event [Unknown]
  - Insomnia [Unknown]
  - Hypoaesthesia [Unknown]
  - Poor peripheral circulation [Unknown]
  - Affect lability [Unknown]

NARRATIVE: CASE EVENT DATE: 2016
